FAERS Safety Report 21149581 (Version 1)
Quarter: 2022Q3

REPORT INFORMATION
  Report Type: Spontaneous
  Country: US (occurrence: US)
  Receive Date: 20220729
  Receipt Date: 20220729
  Transmission Date: 20221027
  Serious: Yes (Hospitalization)
  Sender: FDA-Public Use
  Company Number: US-GLAXOSMITHKLINE-US2022AMR110477

PATIENT

DRUGS (1)
  1. LAMICTAL [Suspect]
     Active Substance: LAMOTRIGINE
     Indication: Seizure
     Dosage: 700 MG, QD 400 MG IN MORNING AND 300 MG IN NIGHT
     Route: 048
     Dates: start: 2007

REACTIONS (4)
  - Abdominal adhesions [Not Recovered/Not Resolved]
  - Drug level decreased [Not Recovered/Not Resolved]
  - Adrenal disorder [Not Recovered/Not Resolved]
  - Drug ineffective [Unknown]
